FAERS Safety Report 9680232 (Version 2)
Quarter: 2013Q4

REPORT INFORMATION
  Report Type: Report from Study
  Country: CN (occurrence: CN)
  Receive Date: 20131111
  Receipt Date: 20131217
  Transmission Date: 20140711
  Serious: Yes (Other)
  Sender: FDA-Public Use
  Company Number: CN-ROCHE-1298894

PATIENT
  Sex: 0

DRUGS (3)
  1. BEVACIZUMAB [Suspect]
     Indication: GASTROINTESTINAL NEOPLASM
     Route: 065
  2. CAPECITABINE [Suspect]
     Indication: GASTROINTESTINAL NEOPLASM
     Route: 065
  3. OXALIPLATIN [Suspect]
     Indication: GASTROINTESTINAL NEOPLASM
     Route: 041

REACTIONS (4)
  - White blood cell count decreased [Unknown]
  - Platelet count decreased [Unknown]
  - Haemoglobin decreased [Unknown]
  - Gastrointestinal disorder [Unknown]
